FAERS Safety Report 15847295 (Version 2)
Quarter: 2019Q1

REPORT INFORMATION
  Report Type: Spontaneous
  Country: IL (occurrence: IL)
  Receive Date: 20190121
  Receipt Date: 20190220
  Transmission Date: 20190417
  Serious: Yes (Other)
  Sender: FDA-Public Use
  Company Number: IL-TEVA-2019-IL-996581

PATIENT
  Age: 21 Year
  Sex: Male

DRUGS (3)
  1. VABEN TAB 10 MG [Concomitant]
  2. ASSIVAL 10 MG [Suspect]
     Active Substance: DIAZEPAM
     Route: 065
  3. PERCOCET TAB 10 MG [Concomitant]

REACTIONS (2)
  - Rhinitis [Unknown]
  - Dizziness [Unknown]
